FAERS Safety Report 7266105-5 (Version None)
Quarter: 2011Q1

REPORT INFORMATION
  Report Type: 
  Country: None (occurrence: None)
  Receive Date: 20110131
  Receipt Date: 20110124
  Transmission Date: 20110831
  Serious: Yes (Other)
  Sender: FDA-Public Use
  Company Number: FR-BRISTOL-MYERS SQUIBB COMPANY-15453160

PATIENT
  Age: 78 Year
  Sex: Female

DRUGS (11)
  1. CORTANCYL [Suspect]
     Indication: DERMATOMYOSITIS
     Dosage: INITIAL DOSE 70 MG/D THEN AT LOWER DOSE FROM JUL-2009
  2. FOSAMAX [Suspect]
     Dosage: EVERY FRIDAY FROM PRIOR TO AUGUST 2009
     Route: 048
  3. FEMARA [Suspect]
     Indication: BREAST CANCER
     Route: 048
  4. INIPOMP [Suspect]
     Dosage: FROM PRIOR TO AUGUST 2009
  5. SPECIAFOLDINE [Suspect]
     Dosage: EVERY DAY EXCEPT MONDAY
     Route: 048
  6. SEROPLEX [Suspect]
     Indication: DEPRESSION
     Route: 048
  7. APROVEL [Suspect]
     Indication: HYPERTENSION
     Route: 048
  8. METOJECT [Suspect]
     Indication: DERMATOMYOSITIS
     Dosage: EVERY MONDAY
  9. ZELITREX [Suspect]
     Route: 048
  10. PLAQUENIL [Suspect]
     Indication: DERMATOMYOSITIS
     Dosage: RECHALLENGED ON 3DEC10 AT 2 TAB DAILY
     Route: 048
     Dates: start: 20090501
  11. CACIT D3 [Suspect]
     Dosage: FROM PRIOR TO AUGUST 2009
     Route: 048

REACTIONS (1)
  - CATARACT [None]
